FAERS Safety Report 4871142-1 (Version None)
Quarter: 2005Q4

REPORT INFORMATION
  Report Type: 
  Country: None (occurrence: None)
  Receive Date: 20051229
  Receipt Date: 20051222
  Transmission Date: 20060501
  Serious: Yes (Hospitalization)
  Sender: FDA-Public Use
  Company Number: TMDP-UK-0512S-0016

PATIENT
  Age: 69 Year
  Sex: Female

DRUGS (4)
  1. TECHNETIUM TC 99M MPI MDP [Suspect]
     Indication: BONE NEOPLASM MALIGNANT
     Dosage: 600 MBQ, SINGLE DOSE, IV
     Route: 042
     Dates: start: 20051221, end: 20051221
  2. TECHNETIUM (TC99M)GENERATOR (DRYTEC) [Concomitant]
  3. PREDNISOLONE [Concomitant]
  4. LIGNOCAINE 2% [Concomitant]

REACTIONS (8)
  - CONFUSIONAL STATE [None]
  - DRUG HYPERSENSITIVITY [None]
  - FATIGUE [None]
  - HYPOTENSION [None]
  - LOSS OF CONSCIOUSNESS [None]
  - MUSCLE RIGIDITY [None]
  - PULSE PRESSURE DECREASED [None]
  - SHOULDER PAIN [None]
